FAERS Safety Report 9427904 (Version 1)
Quarter: 2013Q3

REPORT INFORMATION
  Report Type: Spontaneous
  Country: DE (occurrence: DE)
  Receive Date: 20130730
  Receipt Date: 20130730
  Transmission Date: 20140515
  Serious: Yes (Other)
  Sender: FDA-Public Use
  Company Number: DE-PFIZER INC-2013219206

PATIENT
  Age: 17 Year
  Sex: Female

DRUGS (2)
  1. LYRICA [Suspect]
     Dosage: 450 MG, UNK
     Dates: start: 201307
  2. DIAZEPAM [Suspect]
     Dosage: 30 MG, UNK
     Dates: start: 201307

REACTIONS (1)
  - Drug abuse [Unknown]
